FAERS Safety Report 9880292 (Version 1)
Quarter: 2014Q1

REPORT INFORMATION
  Report Type: Spontaneous
  Country: US (occurrence: US)
  Receive Date: 20140207
  Receipt Date: 20140207
  Transmission Date: 20141002
  Serious: No
  Sender: FDA-Public Use
  Company Number: US-009507513-1402USA000345

PATIENT
  Age: 53 Year
  Sex: Female

DRUGS (1)
  1. REMERON [Suspect]
     Indication: DEPRESSION
     Dosage: 15 MGS, ONCE DAILY AT NIGHT
     Route: 048
     Dates: start: 20131115

REACTIONS (1)
  - Alopecia [Not Recovered/Not Resolved]
